FAERS Safety Report 8061647-7 (Version None)
Quarter: 2012Q1

REPORT INFORMATION
  Report Type: 
  Country: None (occurrence: None)
  Receive Date: 20120123
  Receipt Date: 20120111
  Transmission Date: 20120608
  Serious: Yes (Hospitalization)
  Sender: FDA-Public Use
  Company Number: FR-BRISTOL-MYERS SQUIBB COMPANY-16348872

PATIENT
  Age: 74 Year
  Sex: Male

DRUGS (18)
  1. FOSAMAX [Concomitant]
  2. PRIMPERAN TAB [Concomitant]
  3. PLAVIX [Concomitant]
  4. OMEPRAZOLE [Concomitant]
  5. ZANTAC [Concomitant]
     Indication: PREMEDICATION
  6. PERINDOPRIL [Concomitant]
  7. POLARAMINE [Concomitant]
     Indication: PREMEDICATION
  8. NEORAL [Concomitant]
  9. SPIRIVA [Concomitant]
     Dosage: 1CAPS DAILY
  10. ATORVASTATIN CALCIUM [Concomitant]
  11. TAXOL [Suspect]
     Indication: LUNG SQUAMOUS CELL CARCINOMA STAGE UNSPECIFIED
     Dosage: SINGLE DOSE,INFUSION.
     Route: 042
     Dates: start: 20111103
  12. CARBOPLATIN [Suspect]
     Indication: LUNG SQUAMOUS CELL CARCINOMA STAGE UNSPECIFIED
     Dosage: CARBOPLATINE HOSPIRA 10 MG/ML,SOLUTION FOR INFUSION,SINGLE DOSE.
     Route: 042
     Dates: start: 20111103
  13. PREDNISOLONE [Concomitant]
  14. DIAMICRON [Concomitant]
     Dosage: DIAMICRON ER
  15. CALCIUM + VITAMIN D [Concomitant]
  16. ZOFRAN [Concomitant]
     Indication: PREMEDICATION
  17. SYMBICORT [Concomitant]
     Dosage: DOSE:400/12 UG, 2 DOSES DAILY
  18. ACTRAPID [Concomitant]

REACTIONS (2)
  - NEUROMYOPATHY [None]
  - CONFUSIONAL STATE [None]
